FAERS Safety Report 15496996 (Version 1)
Quarter: 2018Q4

REPORT INFORMATION
  Report Type: Report from Study
  Country: None (occurrence: CA)
  Receive Date: 20181015
  Receipt Date: 20181015
  Transmission Date: 20190205
  Serious: Yes (Hospitalization)
  Sender: FDA-Public Use
  Company Number: CA-ABBVIE-14P-028-1190327-00

PATIENT
  Age: 49 Year
  Sex: Female
  Weight: 77.18 kg

DRUGS (3)
  1. HUMIRA [Suspect]
     Active Substance: ADALIMUMAB
     Route: 058
     Dates: start: 20131213
  2. PLAQUENIL [Concomitant]
     Active Substance: HYDROXYCHLOROQUINE SULFATE
     Indication: RHEUMATOID ARTHRITIS
     Route: 048
  3. HUMIRA [Suspect]
     Active Substance: ADALIMUMAB
     Indication: RHEUMATOID ARTHRITIS
     Route: 058
     Dates: start: 20131108, end: 20131206

REACTIONS (7)
  - Expired product administered [Recovered/Resolved]
  - Sinusitis [Recovered/Resolved]
  - Sinusitis [Not Recovered/Not Resolved]
  - Respiratory tract infection [Recovered/Resolved]
  - Nasopharyngitis [Recovered/Resolved]
  - Fatigue [Unknown]
  - Lower respiratory tract infection [Recovered/Resolved]

NARRATIVE: CASE EVENT DATE: 2013
